FAERS Safety Report 10177482 (Version 2)
Quarter: 2014Q2

REPORT INFORMATION
  Report Type: Spontaneous
  Country: DE (occurrence: DE)
  Receive Date: 20140516
  Receipt Date: 20140516
  Transmission Date: 20141212
  Serious: Yes (Other)
  Sender: FDA-Public Use
  Company Number: DE-ABBVIE-14P-062-1211070-00

PATIENT
  Sex: Female

DRUGS (1)
  1. KREON 10,000 [Suspect]
     Indication: GASTROCARDIAC SYNDROME
     Dates: start: 2012

REACTIONS (8)
  - Atrial fibrillation [Unknown]
  - Tachycardia [Unknown]
  - Gastrocardiac syndrome [Unknown]
  - Product quality issue [Unknown]
  - Off label use [Unknown]
  - Flatulence [Unknown]
  - Disease recurrence [None]
  - Product quality issue [None]
